FAERS Safety Report 7588673-6 (Version None)
Quarter: 2011Q3

REPORT INFORMATION
  Report Type: 
  Country: None (occurrence: None)
  Receive Date: 20110705
  Receipt Date: 20110705
  Transmission Date: 20111222
  Serious: Yes (Life-Threatening, Other)
  Sender: FDA-Public Use
  Company Number: None

PATIENT
  Age: 41 Year
  Sex: Female
  Weight: 96.161 kg

DRUGS (1)
  1. TERBINAFINE HCL [Suspect]
     Indication: ONYCHOMYCOSIS
     Dosage: 1 TABLET
     Route: 048
     Dates: start: 20110615, end: 20110630

REACTIONS (4)
  - MUSCLE TIGHTNESS [None]
  - RASH ERYTHEMATOUS [None]
  - URTICARIA [None]
  - GRIP STRENGTH DECREASED [None]
